FAERS Safety Report 5119211-5 (Version None)
Quarter: 2006Q4

REPORT INFORMATION
  Report Type: 
  Country: None (occurrence: None)
  Receive Date: 20061003
  Receipt Date: 20060925
  Transmission Date: 20070319
  Serious: Yes (Hospitalization)
  Sender: FDA-Public Use
  Company Number: US-JNJFOC-20060906289

PATIENT
  Sex: Male
  Weight: 54.43 kg

DRUGS (12)
  1. FENTANYL TRANSDERMAL SYSTEM [Suspect]
     Route: 062
  2. FENTANYL TRANSDERMAL SYSTEM [Suspect]
     Route: 062
  3. FENTANYL TRANSDERMAL SYSTEM [Suspect]
     Route: 062
  4. FENTANYL TRANSDERMAL SYSTEM [Suspect]
     Indication: RHEUMATOID ARTHRITIS
     Route: 062
  5. DURAGESIC-100 [Suspect]
     Route: 062
  6. DURAGESIC-100 [Suspect]
     Route: 062
  7. DURAGESIC-100 [Suspect]
     Indication: RHEUMATOID ARTHRITIS
     Route: 062
  8. MAXZIDE [Concomitant]
     Route: 065
  9. NITROGLYCERIN [Concomitant]
     Indication: CHEST PAIN
     Route: 065
  10. COREG [Concomitant]
     Route: 065
  11. DARVOCET [Concomitant]
     Indication: PAIN
     Route: 065
  12. PREDNISONE [Concomitant]
     Indication: RHEUMATOID ARTHRITIS
     Route: 065

REACTIONS (4)
  - LOCALISED INFECTION [None]
  - POOR PERIPHERAL CIRCULATION [None]
  - STAPHYLOCOCCAL INFECTION [None]
  - WOUND DRAINAGE [None]
